FAERS Safety Report 19257585 (Version 1)
Quarter: 2021Q2

REPORT INFORMATION
  Report Type: Spontaneous
  Country: US (occurrence: US)
  Receive Date: 20210513
  Receipt Date: 20210513
  Transmission Date: 20210717
  Serious: Yes (Other)
  Sender: FDA-Public Use
  Company Number: None

PATIENT
  Age: 25 Year
  Sex: Female
  Weight: 65.25 kg

DRUGS (9)
  1. VYVANSE [Suspect]
     Active Substance: LISDEXAMFETAMINE DIMESYLATE
     Indication: CHRONIC FATIGUE SYNDROME
     Dosage: ?          QUANTITY:30 CAPSULE(S);?
     Route: 048
     Dates: start: 20210504, end: 20210513
  2. BUPROPRION [Concomitant]
     Active Substance: BUPROPION
  3. ABILIFY [Concomitant]
     Active Substance: ARIPIPRAZOLE
  4. LAMOTRIGINE. [Concomitant]
     Active Substance: LAMOTRIGINE
  5. IRON [Concomitant]
     Active Substance: IRON
  6. VYVANSE [Suspect]
     Active Substance: LISDEXAMFETAMINE DIMESYLATE
     Indication: ATTENTION DEFICIT HYPERACTIVITY DISORDER
     Dosage: ?          QUANTITY:30 CAPSULE(S);?
     Route: 048
     Dates: start: 20210504, end: 20210513
  7. L?GLUTAMINE [Concomitant]
  8. VITAMIN B12 [Concomitant]
     Active Substance: CYANOCOBALAMIN
  9. B6 [Concomitant]
     Active Substance: PYRIDOXINE HYDROCHLORIDE

REACTIONS (13)
  - Withdrawal syndrome [None]
  - Headache [None]
  - Product taste abnormal [None]
  - Swollen tongue [None]
  - Eyelid function disorder [None]
  - Hypersensitivity [None]
  - Condition aggravated [None]
  - Drug ineffective [None]
  - Irritability [None]
  - Hypersomnia [None]
  - Feeling abnormal [None]
  - Hypoaesthesia [None]
  - Mental disorder [None]

NARRATIVE: CASE EVENT DATE: 20210504
